FAERS Safety Report 20595860 (Version 2)
Quarter: 2022Q1

REPORT INFORMATION
  Report Type: Spontaneous
  Country: JP (occurrence: JP)
  Receive Date: 20220315
  Receipt Date: 20220328
  Transmission Date: 20220424
  Serious: Yes (Other)
  Sender: FDA-Public Use
  Company Number: JP-PFIZER INC-202200257571

PATIENT
  Age: 72 Year
  Sex: Male
  Weight: 62.1 kg

DRUGS (11)
  1. XALKORI [Suspect]
     Active Substance: CRIZOTINIB
     Indication: Lung neoplasm malignant
     Dosage: 250 MG, 2X/DAY
     Route: 048
     Dates: start: 20211210, end: 20211220
  2. XALKORI [Suspect]
     Active Substance: CRIZOTINIB
     Dosage: 250 MG, 2X/DAY
     Route: 048
     Dates: start: 20220107, end: 20220204
  3. XALKORI [Suspect]
     Active Substance: CRIZOTINIB
     Dosage: 200 MG, 2X/DAY
     Route: 048
     Dates: start: 20220224
  4. ALLOID G [Concomitant]
     Active Substance: SODIUM ALGINATE
  5. AZELNIDIPINE\OLMESARTAN MEDOXOMIL [Concomitant]
     Active Substance: AZELNIDIPINE\OLMESARTAN MEDOXOMIL
     Indication: Hypertension
     Dosage: 1 DF, 1X/DAY
     Route: 048
  6. PITAVASTATIN [Concomitant]
     Active Substance: PITAVASTATIN
     Indication: Dyslipidaemia
     Dosage: 1 MG, 1X/DAY
     Route: 048
  7. ASPIRIN [Concomitant]
     Active Substance: ASPIRIN
     Indication: Transient ischaemic attack
     Dosage: 100 MG, 1X/DAY
     Route: 048
  8. URSO [Concomitant]
     Active Substance: URSODIOL
     Indication: Chronic hepatitis
     Dosage: 50 MG, 3X/DAY
     Route: 048
  9. FIASP [Concomitant]
     Active Substance: INSULIN ASPART
     Indication: Type 2 diabetes mellitus
     Dosage: 36 UNITS (14-10-12), DAILY
     Route: 058
  10. TRESIBA [Concomitant]
     Active Substance: INSULIN DEGLUDEC
     Indication: Type 2 diabetes mellitus
     Dosage: 20 UNITS, DAILY
     Route: 058
  11. VONOPRAZAN FUMARATE [Concomitant]
     Active Substance: VONOPRAZAN FUMARATE
     Indication: Gastrooesophageal reflux disease
     Dosage: 10 MG, 1X/DAY
     Route: 048
     Dates: start: 20211213

REACTIONS (8)
  - Electrocardiogram QT prolonged [Recovered/Resolved]
  - Interstitial lung disease [Unknown]
  - Oesophageal ulcer [Unknown]
  - Oesophageal candidiasis [Unknown]
  - Gastrointestinal ulcer [Recovering/Resolving]
  - Neoplasm progression [Recovering/Resolving]
  - Photopsia [Not Recovered/Not Resolved]
  - Pleural effusion [Recovered/Resolved]

NARRATIVE: CASE EVENT DATE: 20211211
